FAERS Safety Report 14830115 (Version 1)
Quarter: 2018Q2

REPORT INFORMATION
  Report Type: Report from Study
  Country: IN (occurrence: IN)
  Receive Date: 20180430
  Receipt Date: 20180430
  Transmission Date: 20180711
  Serious: Yes (Hospitalization)
  Sender: FDA-Public Use
  Company Number: IN-BIOGEN-2015BI067097

PATIENT
  Age: 49 Year
  Sex: Female
  Weight: 54.4 kg

DRUGS (8)
  1. DOLO [Concomitant]
     Route: 048
     Dates: start: 20150604, end: 20150606
  2. AZITHROMYCIN ANHYDROUS. [Concomitant]
     Active Substance: AZITHROMYCIN ANHYDROUS
     Indication: PYREXIA
     Route: 050
     Dates: start: 20150514, end: 20150516
  3. DOLO [Concomitant]
     Route: 048
     Dates: start: 20150601, end: 20150603
  4. DOLO [Concomitant]
     Indication: INFLUENZA LIKE ILLNESS
     Route: 050
     Dates: start: 20110228, end: 20150516
  5. DOLO [Concomitant]
     Route: 048
     Dates: start: 20150607
  6. DOLO [Concomitant]
     Route: 048
     Dates: start: 20150521, end: 20150531
  7. DACLIZUMAB HYP [Suspect]
     Active Substance: DACLIZUMAB
     Indication: MULTIPLE SCLEROSIS
     Route: 058
     Dates: start: 20140503, end: 20150430
  8. SHELCAL [Concomitant]
     Indication: ROUTINE HEALTH MAINTENANCE
     Route: 050
     Dates: start: 20110228, end: 20150430

REACTIONS (1)
  - Pulmonary tuberculosis [Recovered/Resolved]

NARRATIVE: CASE EVENT DATE: 20150518
